FAERS Safety Report 11911457 (Version 2)
Quarter: 2016Q1

REPORT INFORMATION
  Report Type: Report from Study
  Country: TR (occurrence: TR)
  Receive Date: 20160112
  Receipt Date: 20160120
  Transmission Date: 20160526
  Serious: Yes (Death, Life-Threatening, Hospitalization, Disabling)
  Sender: FDA-Public Use
  Company Number: TR-009507513-1601TUR003226

PATIENT
  Age: 45 Year
  Sex: Female

DRUGS (2)
  1. ENOXAPARIN SODIUM. [Concomitant]
     Active Substance: ENOXAPARIN SODIUM
     Indication: PULMONARY EMBOLISM
     Dosage: STRENGTH: 0.01 ML/KG, FREQUENCY: 2X2
     Route: 058
     Dates: start: 20151119, end: 20160101
  2. PEMBROLIZUMAB. [Suspect]
     Active Substance: PEMBROLIZUMAB
     Indication: METASTATIC MALIGNANT MELANOMA
     Dosage: 2 MG/KG, Q3W (REPORTED AS TRI-WEEKLY), TOTAL DAILY DOSE: 90 MG
     Route: 042
     Dates: start: 20151207, end: 20151207

REACTIONS (1)
  - Death [Fatal]

NARRATIVE: CASE EVENT DATE: 20160101
